FAERS Safety Report 4868714-7 (Version None)
Quarter: 2005Q4

REPORT INFORMATION
  Report Type: 
  Country: None (occurrence: None)
  Receive Date: 20051223
  Receipt Date: 20051215
  Transmission Date: 20060501
  Serious: Yes (Death, Hospitalization)
  Sender: FDA-Public Use
  Company Number: 2005170223

PATIENT
  Age: 72 Year
  Sex: Male
  Weight: 65 kg

DRUGS (9)
  1. SOLU-MEDROL [Suspect]
     Indication: ILL-DEFINED DISORDER
     Dosage: 120 MG ( 1 IN 1 D), INTRAVENOUS
     Route: 042
     Dates: start: 20051109, end: 20051116
  2. FLAGYL I.V. [Suspect]
     Indication: KLEBSIELLA SEPSIS
     Dosage: 1500 MG (500 MG, 3 IN 1 D), INTRAVENOUS
     Route: 042
     Dates: start: 20051111, end: 20051116
  3. ROCEPHINE (CEFTRIAXONE0 [Suspect]
     Indication: ILL-DEFINED DISORDER
     Dosage: 1 GRAM ( 1 IN 1 D), INTRAVENOUS
     Route: 042
     Dates: end: 20051101
  4. BISOPROLOL FUMARATE [Suspect]
     Indication: ILL-DEFINED DISORDER
     Dosage: ORAL
     Route: 048
     Dates: end: 20051101
  5. PARACETAMOL (PARACETAMOL) [Suspect]
     Indication: ILL-DEFINED DISORDER
     Dosage: 4 GARM (1 GRAM, 4 IN 1 D), INTRAVENOUS
     Route: 042
     Dates: start: 20051109, end: 20051116
  6. OFLOXACIN [Suspect]
     Indication: KLEBSIELLA SEPSIS
     Dosage: 200 MG (1 IN 1 D), INTRAVENOUS
     Route: 042
     Dates: start: 20051111, end: 20051116
  7. SPASFON (PHLOROGLUCINOL, TRIMETHYLPHLOROGLUCINOL) [Concomitant]
  8. CALCIUM GLUCONATE (CALCIUM GLCUONATE) [Concomitant]
  9. LOVENOX [Concomitant]

REACTIONS (9)
  - ANAEMIA [None]
  - BALANCE DISORDER [None]
  - FALL [None]
  - HYPOCALCAEMIA [None]
  - KLEBSIELLA SEPSIS [None]
  - METASTASES TO BONE [None]
  - PANCYTOPENIA [None]
  - RENAL FAILURE ACUTE [None]
  - RHABDOMYOLYSIS [None]
